FAERS Safety Report 9899028 (Version 3)
Quarter: 2015Q3

REPORT INFORMATION
  Report Type: Spontaneous
  Country: US (occurrence: US)
  Receive Date: 20140214
  Receipt Date: 20150810
  Transmission Date: 20151125
  Serious: No
  Sender: FDA-Public Use
  Company Number: US-GILEAD-2011-0044138

PATIENT
  Age: 63 Year
  Sex: Female

DRUGS (4)
  1. LETAIRIS [Suspect]
     Active Substance: AMBRISENTAN
     Indication: HEART DISEASE CONGENITAL
  2. LETAIRIS [Suspect]
     Active Substance: AMBRISENTAN
     Indication: PULMONARY HYPERTENSION
     Route: 048
     Dates: start: 20110728
  3. OXYGEN. [Concomitant]
     Active Substance: OXYGEN
  4. LASIX [Concomitant]
     Active Substance: FUROSEMIDE

REACTIONS (5)
  - Weight increased [Unknown]
  - Nausea [Recovered/Resolved]
  - Oxygen consumption increased [None]
  - Dyspnoea [Not Recovered/Not Resolved]
  - Swelling [Not Recovered/Not Resolved]

NARRATIVE: CASE EVENT DATE: 20110804
